FAERS Safety Report 9508064 (Version 2)
Quarter: 2013Q4

REPORT INFORMATION
  Report Type: Spontaneous
  Country: IN (occurrence: IN)
  Receive Date: 20130909
  Receipt Date: 20131028
  Transmission Date: 20140711
  Serious: Yes (Death)
  Sender: FDA-Public Use
  Company Number: PHHY2013IN097291

PATIENT
  Age: 41 Year
  Sex: Female

DRUGS (3)
  1. METOPROLOL [Suspect]
     Indication: ARRHYTHMIA
     Dosage: 100 MG, BID
  2. PREDNISOLONE SANDOZ [Suspect]
     Dosage: 1 MG/KG, DAILY
  3. AMIODARONE [Suspect]
     Indication: ARRHYTHMIA
     Dosage: 300 MG, DAILY
     Route: 048

REACTIONS (2)
  - Ventricular tachycardia [Fatal]
  - Drug ineffective [Unknown]
